FAERS Safety Report 16342010 (Version 1)
Quarter: 2019Q2

REPORT INFORMATION
  Report Type: Report from Study
  Country: ZA (occurrence: ZA)
  Receive Date: 20190522
  Receipt Date: 20190522
  Transmission Date: 20190711
  Serious: Yes (Death)
  Sender: FDA-Public Use
  Company Number: ZA-ASTRAZENECA-2019SE75277

PATIENT
  Age: 290 Day
  Sex: Female

DRUGS (1)
  1. SYNAGIS [Suspect]
     Active Substance: PALIVIZUMAB
     Indication: RESPIRATORY SYNCYTIAL VIRUS INFECTION
     Dosage: 79.5 MG, MONTHLY
     Route: 030
     Dates: start: 20190103

REACTIONS (1)
  - Death [Fatal]

NARRATIVE: CASE EVENT DATE: 20190514
